FAERS Safety Report 7655896-7 (Version None)
Quarter: 2011Q3

REPORT INFORMATION
  Report Type: 
  Country: None (occurrence: None)
  Receive Date: 20110804
  Receipt Date: 20110804
  Transmission Date: 20111222
  Serious: Yes (Other)
  Sender: FDA-Public Use
  Company Number: None

PATIENT
  Age: 85 Year
  Sex: Female

DRUGS (1)
  1. PRADAXA [Suspect]
     Dosage: 75 MG
     Route: 048
     Dates: start: 20110730, end: 20110802

REACTIONS (1)
  - RECTAL HAEMORRHAGE [None]
